FAERS Safety Report 4651053-7 (Version None)
Quarter: 2005Q2

REPORT INFORMATION
  Report Type: 
  Country: None (occurrence: None)
  Receive Date: 20050503
  Receipt Date: 20000609
  Transmission Date: 20051028
  Serious: Yes (Other)
  Sender: FDA-Public Use
  Company Number: JP-ROCHE-238424

PATIENT
  Age: 18 Year
  Sex: Male
  Weight: 59.9 kg

DRUGS (24)
  1. INVIRASE [Suspect]
     Indication: HIV INFECTION
     Route: 048
     Dates: start: 19980324, end: 20040126
  2. ZERIT [Suspect]
     Indication: HIV INFECTION
     Route: 048
     Dates: start: 19970805, end: 19981014
  3. ZERIT [Suspect]
     Route: 048
     Dates: start: 19981028, end: 20010619
  4. ZERIT [Suspect]
     Route: 048
     Dates: start: 20020401, end: 20030331
  5. ZERIT [Suspect]
     Route: 048
     Dates: start: 20010620
  6. VIRACEPT [Suspect]
     Indication: HIV INFECTION
     Route: 048
     Dates: start: 19970805, end: 19980323
  7. NORVIR [Suspect]
     Indication: HIV INFECTION
     Route: 048
     Dates: start: 19980324, end: 19991028
  8. EPIVIR [Suspect]
     Indication: HIV INFECTION
     Route: 048
     Dates: start: 19970520, end: 19981028
  9. VIDEX [Suspect]
     Indication: HIV INFECTION
     Route: 048
     Dates: start: 19991029, end: 20010221
  10. DDI [Suspect]
     Indication: HIV INFECTION
     Route: 048
     Dates: start: 20010221
  11. D4T [Suspect]
     Indication: HIV INFECTION
     Route: 048
     Dates: start: 19981101
  12. RITONAVIR [Suspect]
     Indication: HIV INFECTION
     Dosage: DRUG NAME REPORTED AS NORVIR SOFT.
     Route: 048
     Dates: start: 19991029
  13. LOPEMIN [Concomitant]
     Indication: DIARRHOEA
     Route: 048
     Dates: start: 19981101, end: 20030331
  14. ANTIHEMOPHILIC FACTOR (HUMAN) [Concomitant]
     Dates: start: 19981101
  15. OCTOCOG ALFA [Concomitant]
     Dates: start: 19970520
  16. NABOAL [Concomitant]
     Indication: PROPHYLAXIS
     Dates: start: 20020401, end: 20030331
  17. RURIOCTOCOG ALFA [Concomitant]
     Dates: start: 20020401, end: 20030331
  18. BEZATOL SR [Concomitant]
     Dates: start: 20020401, end: 20030331
  19. ALOSITOL [Concomitant]
     Dates: start: 20020401, end: 20030331
  20. KETOPROFEN [Concomitant]
     Dosage: SINGLE USE.
     Dates: start: 20020401, end: 20030331
  21. ZOVIRAX [Concomitant]
     Route: 048
     Dates: start: 19971202, end: 19971209
  22. BENAMBAX [Concomitant]
     Indication: PROPHYLAXIS
     Dosage: ROUTE: RESPIRATORY (INHALATION)
     Route: 050
     Dates: start: 19970520, end: 19981209
  23. VIDEX EC [Suspect]
     Indication: HIV INFECTION
     Route: 048
     Dates: start: 20010221
  24. LOPEMIN [Concomitant]
     Route: 048
     Dates: start: 19970808

REACTIONS (9)
  - ALANINE AMINOTRANSFERASE INCREASED [None]
  - ASPARTATE AMINOTRANSFERASE INCREASED [None]
  - BLOOD ALKALINE PHOSPHATASE INCREASED [None]
  - DYSPEPSIA [None]
  - GAMMA-GLUTAMYLTRANSFERASE INCREASED [None]
  - HEPATIC FUNCTION ABNORMAL [None]
  - HYPERTRIGLYCERIDAEMIA [None]
  - HYPERURICAEMIA [None]
  - NEUROPATHY PERIPHERAL [None]
